FAERS Safety Report 20741971 (Version 1)
Quarter: 2022Q2

REPORT INFORMATION
  Report Type: Spontaneous
  Country: US (occurrence: US)
  Receive Date: 20220423
  Receipt Date: 20220423
  Transmission Date: 20220721
  Serious: Yes (Hospitalization, Congenital Anomaly)
  Sender: FDA-Public Use
  Company Number: US-TEVA-2022-US-2031311

PATIENT
  Age: 0 Year

DRUGS (3)
  1. HYDROCODONE BITARTRATE AND ACETAMINOPHEN [Suspect]
     Active Substance: ACETAMINOPHEN\HYDROCODONE BITARTRATE
     Indication: Sciatica
     Route: 064
  2. ACETAMINOPHEN\OXYCODONE HYDROCHLORIDE [Suspect]
     Active Substance: ACETAMINOPHEN\OXYCODONE HYDROCHLORIDE
     Indication: Sciatica
     Route: 064
  3. ACETAMINOPHEN\OXYCODONE HYDROCHLORIDE [Suspect]
     Active Substance: ACETAMINOPHEN\OXYCODONE HYDROCHLORIDE
     Indication: Pain

REACTIONS (17)
  - Drug withdrawal syndrome neonatal [Unknown]
  - Pain [Unknown]
  - Dyskinesia [Unknown]
  - Poor feeding infant [Unknown]
  - Respiratory distress [Unknown]
  - Developmental delay [Not Recovered/Not Resolved]
  - Cognitive disorder [Not Recovered/Not Resolved]
  - Behaviour disorder [Not Recovered/Not Resolved]
  - Attention deficit hyperactivity disorder [Not Recovered/Not Resolved]
  - Oppositional defiant disorder [Not Recovered/Not Resolved]
  - Hypertonia [Not Recovered/Not Resolved]
  - Heterophoria [Not Recovered/Not Resolved]
  - Asthenopia [Not Recovered/Not Resolved]
  - Strabismus [Not Recovered/Not Resolved]
  - Foetal exposure during pregnancy [Unknown]
  - Depression [Unknown]
  - Anxiety [Unknown]

NARRATIVE: CASE EVENT DATE: 20121209
